FAERS Safety Report 6810716-5 (Version None)
Quarter: 2010Q2

REPORT INFORMATION
  Report Type: 
  Country: None (occurrence: None)
  Receive Date: 20100630
  Receipt Date: 20070828
  Transmission Date: 20101027
  Serious: No
  Sender: FDA-Public Use
  Company Number: US-PFIZER INC-2007071840

PATIENT
  Sex: Female

DRUGS (7)
  1. ESTRING [Suspect]
     Dosage: 7.5MCG/24HOURS
     Route: 067
  2. SPIRIVA [Concomitant]
  3. SEREVENT [Concomitant]
  4. ASMADEX [Concomitant]
  5. ALBUTEROL [Concomitant]
  6. FOSAMAX [Concomitant]
  7. SYNTHROID [Concomitant]

REACTIONS (1)
  - DIZZINESS [None]
